FAERS Safety Report 12384849 (Version 6)
Quarter: 2018Q4

REPORT INFORMATION
  Report Type: Spontaneous
  Country: US (occurrence: US)
  Receive Date: 20160519
  Receipt Date: 20181018
  Transmission Date: 20190204
  Serious: Yes (Other)
  Sender: FDA-Public Use
  Company Number: PHHY2016US067806

PATIENT
  Age: 47 Year
  Sex: Female

DRUGS (7)
  1. ZOLEDRONIC ACID [Suspect]
     Active Substance: ZOLEDRONIC ACID
     Indication: PAIN MANAGEMENT
     Dosage: 4 MG, Q3MO
     Route: 042
  2. ZOLEDRONIC ACID [Suspect]
     Active Substance: ZOLEDRONIC ACID
     Indication: FIBROUS DYSPLASIA OF BONE
     Dosage: 1 DF, UNK
     Route: 042
  3. PAMIDRONATE [Suspect]
     Active Substance: PAMIDRONATE DISODIUM
     Indication: FIBROUS DYSPLASIA OF BONE
  4. PAMIDRONATE [Suspect]
     Active Substance: PAMIDRONATE DISODIUM
     Indication: PAIN MANAGEMENT
     Dosage: 180 MG, Q3MO
     Route: 042
  5. AMITRIPTYLINE [Suspect]
     Active Substance: AMITRIPTYLINE
     Indication: FIBROUS DYSPLASIA OF BONE
     Dosage: UNK
     Route: 065
  6. AMITRIPTYLINE [Suspect]
     Active Substance: AMITRIPTYLINE
     Indication: BONE PAIN
  7. PENICILLIN V [Concomitant]
     Active Substance: PENICILLIN V
     Indication: RADIOLUCENCY AROUND IMPLANT
     Dosage: UNK
     Route: 065

REACTIONS (10)
  - Pain [Unknown]
  - Fistula [Unknown]
  - Erythema [Unknown]
  - Impaired healing [Recovering/Resolving]
  - Swelling [Unknown]
  - Drug ineffective [Unknown]
  - Exposed bone in jaw [Unknown]
  - Temperature intolerance [Unknown]
  - Product use in unapproved indication [Unknown]
  - Osteonecrosis of jaw [Not Recovered/Not Resolved]
